FAERS Safety Report 17283995 (Version 1)
Quarter: 2020Q1

REPORT INFORMATION
  Report Type: Spontaneous
  Country: US (occurrence: US)
  Receive Date: 20200117
  Receipt Date: 20200117
  Transmission Date: 20200409
  Serious: No
  Sender: FDA-Public Use
  Company Number: US-SUNOVION-2020SUN000052

PATIENT
  Sex: Female

DRUGS (4)
  1. ATIVAN [Concomitant]
     Active Substance: LORAZEPAM
     Dosage: UNK
     Route: 065
  2. TRAZODONE [Concomitant]
     Active Substance: TRAZODONE HYDROCHLORIDE
     Dosage: UNK
     Route: 065
  3. LATUDA [Suspect]
     Active Substance: LURASIDONE HYDROCHLORIDE
     Indication: ANXIETY
  4. LATUDA [Suspect]
     Active Substance: LURASIDONE HYDROCHLORIDE
     Indication: BIPOLAR II DISORDER
     Dosage: 60 MG
     Route: 048

REACTIONS (19)
  - Flushing [Unknown]
  - Abdominal pain upper [Unknown]
  - Fatigue [Unknown]
  - Erythema [Unknown]
  - Off label use [Unknown]
  - Decreased appetite [Unknown]
  - Feeling hot [Unknown]
  - Chills [Unknown]
  - Gastritis [Unknown]
  - Malaise [Unknown]
  - Abdominal discomfort [Unknown]
  - Therapy cessation [Unknown]
  - Eructation [Unknown]
  - Diarrhoea [Unknown]
  - Decreased activity [Unknown]
  - Feeling cold [Unknown]
  - Dyspepsia [Unknown]
  - Dyskinesia [Unknown]
  - Asthenia [Unknown]
